FAERS Safety Report 5834861-6 (Version None)
Quarter: 2008Q3

REPORT INFORMATION
  Report Type: 
  Country: None (occurrence: None)
  Receive Date: 20080805
  Receipt Date: 20080805
  Transmission Date: 20090109
  Serious: No
  Sender: FDA-Public Use
  Company Number: None

PATIENT
  Age: 35 Year
  Sex: Female
  Weight: 77.1115 kg

DRUGS (1)
  1. FLUOXETINE [Suspect]
     Indication: DEPRESSION

REACTIONS (2)
  - CONDITION AGGRAVATED [None]
  - DEPRESSION [None]
